FAERS Safety Report 10883068 (Version 1)
Quarter: 2015Q1

REPORT INFORMATION
  Report Type: Spontaneous
  Country: US (occurrence: None)
  Receive Date: 20150226
  Receipt Date: 20150226
  Transmission Date: 20150721
  Serious: Yes (Life-Threatening, Hospitalization, Disabling)
  Sender: FDA-Public Use
  Company Number: None

PATIENT
  Age: 46 Year
  Sex: Female
  Weight: 86.18 kg

DRUGS (6)
  1. CANE [Concomitant]
  2. FAMOTIDINE. [Concomitant]
     Active Substance: FAMOTIDINE
  3. CIPROFLOXACIN. [Suspect]
     Active Substance: CIPROFLOXACIN
     Indication: ANTIBIOTIC THERAPY
     Route: 048
     Dates: start: 20060509, end: 20120331
  4. ESPOM BATH SALT [Concomitant]
  5. CIPROFLOXACIN. [Suspect]
     Active Substance: CIPROFLOXACIN
     Indication: PROPHYLAXIS
     Route: 048
     Dates: start: 20060509, end: 20120331
  6. CIPROFLOXACIN. [Suspect]
     Active Substance: CIPROFLOXACIN
     Indication: URINARY TRACT INFECTION
     Route: 048
     Dates: start: 20060509, end: 20120331

REACTIONS (17)
  - Dizziness [None]
  - Memory impairment [None]
  - Allergy to chemicals [None]
  - Pain in extremity [None]
  - Incontinence [None]
  - Bursitis [None]
  - Meralgia paraesthetica [None]
  - Visual impairment [None]
  - Neuropathy peripheral [None]
  - Dyspnoea [None]
  - Radiculopathy [None]
  - Fear [None]
  - Disturbance in attention [None]
  - Pollakiuria [None]
  - Vertigo [None]
  - Balance disorder [None]
  - Food allergy [None]

NARRATIVE: CASE EVENT DATE: 20060509
